FAERS Safety Report 6043638-0 (Version None)
Quarter: 2009Q1

REPORT INFORMATION
  Report Type: 
  Country: None (occurrence: None)
  Receive Date: 20090115
  Receipt Date: 20090109
  Transmission Date: 20090719
  Serious: Yes (Hospitalization)
  Sender: FDA-Public Use
  Company Number: 6048124

PATIENT
  Age: 59 Year
  Sex: Female

DRUGS (3)
  1. BISOPROLOL FUMARATE [Suspect]
     Indication: HYPERTENSION
     Dosage: 10 MG (5 MG, 2 IN 1 D)  ORAL
     Route: 048
     Dates: start: 20071001, end: 20080712
  2. NITREPRESS     (TABLET) (NITRENDIPINE) [Suspect]
     Indication: HYPERTENSION
     Dosage: (10 MG) ORAL
     Route: 048
     Dates: start: 20080101, end: 20080714
  3. PANTOZOL     (TABLET) (PANTOPRAZOLE SODIUM) [Concomitant]

REACTIONS (2)
  - NAUSEA [None]
  - TACHYCARDIA [None]
